FAERS Safety Report 8743012 (Version 2)
Quarter: 2014Q3

REPORT INFORMATION
  Report Type: Report from Study
  Country: DE (occurrence: DE)
  Receive Date: 20120824
  Receipt Date: 20140814
  Transmission Date: 20150326
  Serious: Yes (Death, Other)
  Sender: FDA-Public Use
  Company Number: DE-CELGENEUS-062-21880-12081716

PATIENT

DRUGS (4)
  1. REVLIMID [Suspect]
     Active Substance: LENALIDOMIDE
     Indication: PLASMA CELL MYELOMA
     Route: 048
  2. MELPHALAN [Concomitant]
     Active Substance: MELPHALAN
     Indication: PRODUCT USED FOR UNKNOWN INDICATION
     Route: 065
  3. REVLIMID [Suspect]
     Active Substance: LENALIDOMIDE
     Route: 048
  4. DEXAMETHASONE. [Concomitant]
     Active Substance: DEXAMETHASONE
     Indication: PLASMA CELL MYELOMA
     Route: 048

REACTIONS (12)
  - Plasma cell myeloma [Fatal]
  - Pain [Unknown]
  - Neoplasm [Unknown]
  - Death [Fatal]
  - Infection [Unknown]
  - Pyrexia [Unknown]
  - Rash [Unknown]
  - Sepsis [Fatal]
  - Neoplasm skin [Unknown]
  - Embolism [Unknown]
  - Plasma cell leukaemia [Unknown]
  - Cardiac failure [Fatal]
